FAERS Safety Report 7798964-1 (Version None)
Quarter: 2011Q4

REPORT INFORMATION
  Report Type: 
  Country: None (occurrence: None)
  Receive Date: 20111006
  Receipt Date: 20110928
  Transmission Date: 20120403
  Serious: Yes (Hospitalization)
  Sender: FDA-Public Use
  Company Number: FR-ASTELLAS-2011EU006692

PATIENT
  Age: 64 Year
  Sex: Male

DRUGS (1)
  1. PROGRAF [Suspect]
     Indication: LIVER TRANSPLANT
     Dosage: 7 MG/DAY, UNKNOWN/D
     Route: 048
     Dates: start: 20110209, end: 20110425

REACTIONS (1)
  - CEREBRAL MICROANGIOPATHY [None]
